FAERS Safety Report 5318708-2 (Version None)
Quarter: 2007Q2

REPORT INFORMATION
  Report Type: 
  Country: None (occurrence: None)
  Receive Date: 20070503
  Receipt Date: 20070503
  Transmission Date: 20071010
  Serious: No
  Sender: FDA-Public Use
  Company Number: None

PATIENT
  Age: 58 Year
  Sex: Female

DRUGS (10)
  1. VERAPAMIL [Suspect]
     Dates: start: 20051008, end: 20060412
  2. PREMARIN [Concomitant]
  3. ACIPHEX [Concomitant]
  4. VALTREX [Concomitant]
  5. AMBIEN [Concomitant]
  6. ALLEGRA [Concomitant]
  7. ASPIRIN [Concomitant]
  8. TYLENOL [Concomitant]
  9. BOTOX [Concomitant]
  10. TOPAMAX [Concomitant]

REACTIONS (9)
  - ABDOMINAL PAIN UPPER [None]
  - ALANINE AMINOTRANSFERASE INCREASED [None]
  - ASPARTATE AMINOTRANSFERASE INCREASED [None]
  - BLOOD ALKALINE PHOSPHATASE INCREASED [None]
  - BLOOD BILIRUBIN INCREASED [None]
  - CHOLESTASIS [None]
  - JAUNDICE [None]
  - LIVER INJURY [None]
  - PRURITUS [None]
